FAERS Safety Report 5063225-0 (Version None)
Quarter: 2006Q3

REPORT INFORMATION
  Report Type: 
  Country: None (occurrence: None)
  Receive Date: 20060724
  Receipt Date: 20060724
  Transmission Date: 20061208
  Serious: Yes (Other)
  Sender: FDA-Public Use
  Company Number: None

PATIENT
  Age: 44 Year
  Sex: Male
  Weight: 146.6 kg

DRUGS (2)
  1. THYMOGLOBULIN [Suspect]
     Indication: IMMUNOSUPPRESSION
     Dosage: 90 MG ONCE IV
     Route: 042
     Dates: start: 20060718, end: 20060718
  2. THYMOGLOBULIN [Suspect]
     Indication: POSTOPERATIVE CARE
     Dosage: 90 MG ONCE IV
     Route: 042
     Dates: start: 20060718, end: 20060718

REACTIONS (2)
  - INFUSION RELATED REACTION [None]
  - PYREXIA [None]
